FAERS Safety Report 15975828 (Version 1)
Quarter: 2019Q1

REPORT INFORMATION
  Report Type: Spontaneous
  Country: US (occurrence: US)
  Receive Date: 20190218
  Receipt Date: 20190218
  Transmission Date: 20190418
  Serious: No
  Sender: FDA-Public Use
  Company Number: US-CELLTRION INC.-2018US023956

PATIENT

DRUGS (3)
  1. INFLECTRA [Suspect]
     Active Substance: INFLIXIMAB-DYYB
     Indication: SAPHO SYNDROME
     Dosage: 500 MG EVERY 8 WEEKS
     Route: 065
     Dates: start: 20180718, end: 20180718
  2. INFLECTRA [Suspect]
     Active Substance: INFLIXIMAB-DYYB
     Dosage: 500 MG EVERY 8 WEEKS
     Route: 065
     Dates: start: 20181107, end: 20181107
  3. INFLECTRA [Suspect]
     Active Substance: INFLIXIMAB-DYYB
     Dosage: 500 MG EVERY 8 WEEKS
     Route: 065

REACTIONS (5)
  - Back pain [Unknown]
  - Off label use [Unknown]
  - Anal incontinence [Unknown]
  - Urinary incontinence [Unknown]
  - Abdominal pain [Unknown]

NARRATIVE: CASE EVENT DATE: 20181107
